FAERS Safety Report 15049306 (Version 1)
Quarter: 2018Q2

REPORT INFORMATION
  Report Type: Spontaneous
  Country: US (occurrence: US)
  Receive Date: 20180601
  Receipt Date: 20180601
  Transmission Date: 20180711
  Serious: No
  Sender: FDA-Public Use
  Company Number: None

PATIENT
  Age: 53 Year
  Sex: Female

DRUGS (1)
  1. ZYKADIA [Suspect]
     Active Substance: CERITINIB
     Route: 048
     Dates: start: 20180528, end: 20180601

REACTIONS (4)
  - Cold sweat [None]
  - Heart rate irregular [None]
  - Pain in extremity [None]
  - Heart rate increased [None]

NARRATIVE: CASE EVENT DATE: 20180601
